FAERS Safety Report 13602612 (Version 1)
Quarter: 2017Q2

REPORT INFORMATION
  Report Type: Spontaneous
  Country: US (occurrence: US)
  Receive Date: 20170601
  Receipt Date: 20170601
  Transmission Date: 20170830
  Serious: No
  Sender: FDA-Public Use
  Company Number: US-BAYER-2017-103127

PATIENT
  Age: 54 Year
  Sex: Female
  Weight: 139.68 kg

DRUGS (6)
  1. ULTRAVIST [Suspect]
     Active Substance: IOPROMIDE
     Indication: COMPUTERISED TOMOGRAM ABDOMEN
     Dosage: UNK UNK, ONCE
     Dates: start: 20170517
  2. ULTRAVIST [Suspect]
     Active Substance: IOPROMIDE
     Indication: ABDOMINAL PAIN LOWER
  3. HUMALOG MIX [INSULIN LISPRO,INSULIN LISPRO PROTAMINE SUSPENSION] [Concomitant]
     Dosage: UNK
  4. ULTRAVIST [Suspect]
     Active Substance: IOPROMIDE
     Indication: NAUSEA
  5. ULTRAVIST [Suspect]
     Active Substance: IOPROMIDE
     Indication: COMPUTERISED TOMOGRAM PELVIS
  6. ULTRAVIST [Suspect]
     Active Substance: IOPROMIDE
     Indication: FLATULENCE

REACTIONS (6)
  - Vomiting [Recovered/Resolved]
  - Swollen tongue [Recovered/Resolved]
  - Abnormal sensation in eye [Recovered/Resolved]
  - Dysphagia [Recovered/Resolved]
  - Tachycardia [Recovered/Resolved]
  - Iodine allergy [Recovered/Resolved]

NARRATIVE: CASE EVENT DATE: 20170517
